FAERS Safety Report 5170643-9 (Version None)
Quarter: 2006Q4

REPORT INFORMATION
  Report Type: 
  Country: None (occurrence: None)
  Receive Date: 20061201
  Receipt Date: 20061116
  Transmission Date: 20070319
  Serious: Yes (Death)
  Sender: FDA-Public Use
  Company Number: 8019880

PATIENT
  Age: 54 Year
  Sex: Female

DRUGS (2)
  1. KEPPRA [Suspect]
     Indication: EPILEPSY
     Dosage: 2000 MG 2/D PO
     Route: 048
     Dates: end: 20060830
  2. KEPPRA [Suspect]
     Indication: EPILEPSY
     Dosage: 2000 MG 2/D IV
     Route: 042
     Dates: start: 20060831, end: 20060902

REACTIONS (6)
  - ANOXIA [None]
  - CARDIAC ARREST [None]
  - ILL-DEFINED DISORDER [None]
  - MYOCARDIAL INFARCTION [None]
  - MYOCLONUS [None]
  - VENTRICULAR FIBRILLATION [None]
